FAERS Safety Report 4688763-1 (Version None)
Quarter: 2005Q2

REPORT INFORMATION
  Report Type: 
  Country: None (occurrence: None)
  Receive Date: 20050610
  Receipt Date: 20050610
  Transmission Date: 20051028
  Serious: Yes (Hospitalization)
  Sender: FDA-Public Use
  Company Number: None

PATIENT
  Age: 82 Year
  Sex: Female
  Weight: 36 kg

DRUGS (21)
  1. IRESSA [Suspect]
     Indication: NON-SMALL CELL LUNG CANCER
     Dosage: 125 MG BID PO
     Route: 048
     Dates: start: 20050202
  2. IRESSA [Suspect]
     Indication: NON-SMALL CELL LUNG CANCER
     Dosage: 125 MG BID PO
     Route: 048
     Dates: start: 20050327
  3. FASLODEX [Suspect]
     Indication: NON-SMALL CELL LUNG CANCER
     Dosage: 250 MG Q MONTH IM
     Route: 030
     Dates: start: 20050202
  4. FASLODEX [Suspect]
     Indication: NON-SMALL CELL LUNG CANCER
     Dosage: 250 MG Q MONTH IM
     Route: 030
     Dates: start: 20050302
  5. ASPIRIN [Concomitant]
  6. ACCUPRIL [Concomitant]
  7. RANITIDINE [Concomitant]
  8. PREVACHOL [Concomitant]
  9. VERALEX [Concomitant]
  10. ATENOLOL [Concomitant]
  11. PREP-H [Concomitant]
  12. TYLENOL PM [Concomitant]
  13. NITROGLYCERIN [Concomitant]
  14. MULTI-VITAMIN [Concomitant]
  15. STOOL SOFTNER [Concomitant]
  16. NICOTINE [Concomitant]
  17. VICODIN [Concomitant]
  18. HYDROCODONE BITARTRATE [Concomitant]
  19. ALBUTEROL [Concomitant]
  20. SPIRIVA [Concomitant]
  21. ZIVAR [Concomitant]

REACTIONS (7)
  - DEHYDRATION [None]
  - DIARRHOEA [None]
  - DYSPNOEA [None]
  - HYPOXIA [None]
  - LETHARGY [None]
  - LOWER GASTROINTESTINAL HAEMORRHAGE [None]
  - RECTAL CANCER [None]
